FAERS Safety Report 4284746-4 (Version None)
Quarter: 2004Q1

REPORT INFORMATION
  Report Type: 
  Country: None (occurrence: None)
  Receive Date: 20040130
  Receipt Date: 20040119
  Transmission Date: 20041129
  Serious: No
  Sender: FDA-Public Use
  Company Number: 03P-167-0235110-00

PATIENT
  Age: 36 Year
  Sex: Female

DRUGS (7)
  1. KALETRA [Suspect]
     Indication: HIV INFECTION
     Dosage: 3 CAPSULE, 2 IN 1 D, PER ORAL
     Route: 048
     Dates: start: 20030814
  2. ABACAVIR [Suspect]
     Indication: HIV INFECTION
     Dosage: 1 CAPSULE, 2 IN 1 D, PER ORAL
     Route: 048
     Dates: start: 20030814
  3. DIDANOSINE [Suspect]
     Indication: HIV INFECTION
     Dosage: 400 MG, 1 IN 1 D, PER ORAL
     Route: 048
     Dates: start: 20030814
  4. ZIDOVUDINE W/LAMIVUDINE [Concomitant]
  5. NEVIRAPINE [Concomitant]
  6. TRIZIVIR [Concomitant]
  7. LOPINAVIR [Concomitant]

REACTIONS (3)
  - DEAFNESS [None]
  - DIZZINESS [None]
  - NEUROPATHY PERIPHERAL [None]
